FAERS Safety Report 7569206-7 (Version None)
Quarter: 2011Q2

REPORT INFORMATION
  Report Type: 
  Country: None (occurrence: None)
  Receive Date: 20110623
  Receipt Date: 20110613
  Transmission Date: 20111010
  Serious: Yes (Other)
  Sender: FDA-Public Use
  Company Number: PHHY2011US47458

PATIENT
  Sex: Female

DRUGS (2)
  1. PARLODEL [Suspect]
     Dosage: 5 MG, UNK
     Route: 048
  2. PARLODEL [Suspect]
     Dosage: 5 MG, UNK
     Route: 048

REACTIONS (3)
  - OEDEMA [None]
  - LACTATION DISORDER [None]
  - BENIGN BREAST NEOPLASM [None]
